FAERS Safety Report 4591929-2 (Version None)
Quarter: 2005Q1

REPORT INFORMATION
  Report Type: 
  Country: None (occurrence: None)
  Receive Date: 20050225
  Receipt Date: 20050107
  Transmission Date: 20050727
  Serious: Yes (Hospitalization, Disabling)
  Sender: FDA-Public Use
  Company Number: DE-MERCK-0501DEU00119

PATIENT
  Age: 69 Year
  Sex: Male

DRUGS (6)
  1. VIOXX [Suspect]
     Route: 065
     Dates: start: 20030101
  2. VIOXX [Suspect]
     Route: 048
     Dates: start: 20040202
  3. ASPIRIN [Concomitant]
     Route: 048
  4. RAMIPRIL [Concomitant]
     Route: 048
  5. MAGNESIUM OXIDE [Concomitant]
     Route: 048
  6. SIMVASTATIN [Concomitant]
     Route: 048

REACTIONS (4)
  - AMNESIA [None]
  - BALANCE DISORDER [None]
  - CEREBRAL HAEMORRHAGE [None]
  - SPEECH DISORDER [None]
